FAERS Safety Report 5373815-3 (Version None)
Quarter: 2007Q2

REPORT INFORMATION
  Report Type: 
  Country: None (occurrence: None)
  Receive Date: 20070628
  Receipt Date: 20070618
  Transmission Date: 20071010
  Serious: Yes (Other)
  Sender: FDA-Public Use
  Company Number: GB-PFIZER INC-2007050479

PATIENT
  Age: 76 Year
  Sex: Male

DRUGS (3)
  1. GABAPENTIN [Suspect]
     Indication: NEURALGIA
     Route: 048
     Dates: start: 20070518, end: 20070520
  2. FELODIPINE [Concomitant]
     Route: 048
  3. MADOPAR [Concomitant]
     Route: 048

REACTIONS (1)
  - PARKINSON'S DISEASE [None]
